FAERS Safety Report 17583994 (Version 1)
Quarter: 2020Q1

REPORT INFORMATION
  Report Type: Spontaneous
  Country: DK (occurrence: DK)
  Receive Date: 20200326
  Receipt Date: 20200326
  Transmission Date: 20200409
  Serious: Yes (Hospitalization)
  Sender: FDA-Public Use
  Company Number: DK-ALK-ABELLO A/S-2020AA001002

PATIENT

DRUGS (7)
  1. PROGESTERONE. [Concomitant]
     Active Substance: PROGESTERONE
     Indication: PRODUCT USED FOR UNKNOWN INDICATION
  2. MONTELUKAST [Concomitant]
     Active Substance: MONTELUKAST SODIUM
     Indication: ASTHMA
     Dosage: 10 MILLIGRAM, QD
     Route: 048
     Dates: start: 20180829
  3. FORMOTEROL [Concomitant]
     Active Substance: FORMOTEROL
     Indication: ASTHMA
     Dosage: 160/4,5 MKG
     Route: 055
     Dates: start: 20180404
  4. BUVENTOL                           /00139502/ [Concomitant]
     Indication: ASTHMA
     Dosage: 200 MKG/DOSE
     Route: 055
     Dates: start: 20180220
  5. GRAZAX [Suspect]
     Active Substance: PHLEUM PRATENSE POLLEN
     Indication: SEASONAL ALLERGY
     Dosage: 75000 SQ-T, QD
     Route: 048
     Dates: start: 20180220
  6. OPATANOL                           /01362801/ [Concomitant]
     Indication: EYE ALLERGY
     Dosage: 1 MG/ML
     Dates: start: 20190626
  7. BUDESONID [Concomitant]
     Active Substance: BUDESONIDE

REACTIONS (2)
  - Lip oedema [Recovered/Resolved]
  - Oral pruritus [Recovered/Resolved]

NARRATIVE: CASE EVENT DATE: 20200221
